FAERS Safety Report 11693820 (Version 2)
Quarter: 2015Q4

REPORT INFORMATION
  Report Type: Spontaneous
  Country: US (occurrence: US)
  Receive Date: 20151103
  Receipt Date: 20151123
  Transmission Date: 20160304
  Serious: Yes (Other)
  Sender: FDA-Public Use
  Company Number: US-MYLANLABS-2015M1036431

PATIENT

DRUGS (13)
  1. PLAVIX [Concomitant]
     Active Substance: CLOPIDOGREL BISULFATE
     Dosage: 75 MG, QD
     Route: 048
  2. ATIVAN [Concomitant]
     Active Substance: LORAZEPAM
     Dosage: 0.5 MG, PRN
  3. LOPRESSOR [Suspect]
     Active Substance: METOPROLOL TARTRATE
     Dosage: 25 MG, TID
     Route: 048
     Dates: start: 1996
  4. ZETIA [Concomitant]
     Active Substance: EZETIMIBE
     Dosage: 10 MG, QD
     Route: 048
  5. GLYCERYL TRINITRATE [Suspect]
     Active Substance: NITROGLYCERIN
     Indication: ANGINA PECTORIS
     Dosage: 0.4 MG/HR, QD
     Route: 062
  6. VERAPAMIL [Suspect]
     Active Substance: VERAPAMIL HYDROCHLORIDE
     Dosage: 180 MG, QD
     Route: 048
     Dates: start: 2005
  7. LIPITOR [Concomitant]
     Active Substance: ATORVASTATIN CALCIUM
     Dosage: 40 MG, QD
     Route: 048
  8. PREVACID [Concomitant]
     Active Substance: LANSOPRAZOLE
     Indication: GASTROINTESTINAL DISORDER
     Dosage: 30 MG, QD
     Route: 048
  9. ASPIRIN                            /00002701/ [Concomitant]
     Active Substance: ASPIRIN
     Dosage: UNK
  10. NITROGLYCERIN TRANSDERMAL DELIVERY SYSTEM [Suspect]
     Active Substance: NITROGLYCERIN
     Indication: ANGINA PECTORIS
     Dosage: 0.4 MG, QH, CHANGED QD
     Route: 062
  11. ZOLOFT [Concomitant]
     Active Substance: SERTRALINE HYDROCHLORIDE
     Indication: DEPRESSION
     Dosage: 100 MG, BID
     Route: 048
  12. COMBIVENT RESPIMAT [Concomitant]
     Active Substance: ALBUTEROL SULFATE\IPRATROPIUM BROMIDE
     Indication: EMPHYSEMA
     Dosage: UNK, PRN
     Route: 055
  13. NITROGLYCERIN. [Concomitant]
     Active Substance: NITROGLYCERIN
     Indication: ANGINA PECTORIS
     Dosage: 0.4 MG, PRN
     Route: 060

REACTIONS (8)
  - Drug effect decreased [Recovered/Resolved]
  - Application site burn [Recovered/Resolved]
  - Application site rash [Recovered/Resolved]
  - Drug ineffective [Recovered/Resolved]
  - Hypertension [Not Recovered/Not Resolved]
  - Sinus bradycardia [Not Recovered/Not Resolved]
  - Application site reaction [Recovered/Resolved]
  - Wrong technique in product usage process [Not Recovered/Not Resolved]

NARRATIVE: CASE EVENT DATE: 201306
